FAERS Safety Report 7630143-0 (Version None)
Quarter: 2011Q3

REPORT INFORMATION
  Report Type: 
  Country: None (occurrence: None)
  Receive Date: 20110722
  Receipt Date: 20110713
  Transmission Date: 20111222
  Serious: Yes (Hospitalization, Other)
  Sender: FDA-Public Use
  Company Number: US-BAYER-2011-003474

PATIENT
  Age: 30 Year
  Sex: Female
  Weight: 69.841 kg

DRUGS (1)
  1. YASMIN [Suspect]
     Dosage: UNK
     Dates: start: 20070101

REACTIONS (8)
  - ANXIETY [None]
  - GALLBLADDER DISORDER [None]
  - CHOLECYSTITIS CHRONIC [None]
  - BILIARY DYSKINESIA [None]
  - FEAR [None]
  - GALLBLADDER CHOLESTEROLOSIS [None]
  - CHOLECYSTITIS [None]
  - PAIN [None]
